FAERS Safety Report 11514068 (Version 1)
Quarter: 2015Q3

REPORT INFORMATION
  Report Type: Spontaneous
  Country: US (occurrence: US)
  Receive Date: 20150903
  Receipt Date: 20150903
  Transmission Date: 20151125
  Serious: Yes (Other)
  Sender: FDA-Public Use
  Company Number: US-ELI_LILLY_AND_COMPANY-US201211002577

PATIENT
  Age: 17 Year
  Sex: Female

DRUGS (4)
  1. CYMBALTA [Suspect]
     Active Substance: DULOXETINE HYDROCHLORIDE
     Indication: OPTIC NEURITIS
     Dosage: 30 MG, UNKNOWN
     Dates: start: 20121031, end: 20121101
  2. VITAMIN D [Concomitant]
     Active Substance: CHOLECALCIFEROL
  3. VITAMIN B12 [Concomitant]
     Active Substance: CYANOCOBALAMIN
  4. TYSABRI [Concomitant]
     Active Substance: NATALIZUMAB
     Dosage: UNK, MONTHLY (1/M)

REACTIONS (6)
  - Off label use [Unknown]
  - Tremor [Unknown]
  - Insomnia [Unknown]
  - Throat tightness [Unknown]
  - Dysphagia [Unknown]
  - Blood pressure increased [Unknown]

NARRATIVE: CASE EVENT DATE: 20121031
